FAERS Safety Report 20053888 (Version 3)
Quarter: 2021Q4

REPORT INFORMATION
  Report Type: Spontaneous
  Country: CN (occurrence: CN)
  Receive Date: 20211110
  Receipt Date: 20211201
  Transmission Date: 20220303
  Serious: Yes (Life-Threatening, Other)
  Sender: FDA-Public Use
  Company Number: ALC2021CN006014

PATIENT
  Age: 48 Year
  Sex: Male

DRUGS (11)
  1. FLUORESCITE [Suspect]
     Active Substance: FLUORESCEIN SODIUM
     Indication: Angiogram
     Dosage: 4 ML
     Route: 042
     Dates: start: 20211027, end: 20211027
  2. SODIUM CHLORIDE [Concomitant]
     Active Substance: SODIUM CHLORIDE
     Indication: Drug therapy enhancement
     Dosage: 10 ML
     Route: 042
     Dates: start: 20211027, end: 20211027
  3. DESLORATADINE [Concomitant]
     Active Substance: DESLORATADINE
     Indication: Skin irritation
     Dosage: 8.8 MG (ANTI-ALLERGIC TREATMENT)
     Route: 048
     Dates: start: 20211027, end: 20211027
  4. DESLORATADINE [Concomitant]
     Active Substance: DESLORATADINE
     Indication: Rash macular
  5. DESLORATADINE [Concomitant]
     Active Substance: DESLORATADINE
     Indication: Antiallergic therapy
  6. DEXAMETHASONE SODIUM PHOSPHATE [Concomitant]
     Active Substance: DEXAMETHASONE SODIUM PHOSPHATE
     Indication: Pruritus
     Dosage: 5 MG
     Route: 042
     Dates: start: 20211027, end: 20211027
  7. DEXAMETHASONE SODIUM PHOSPHATE [Concomitant]
     Active Substance: DEXAMETHASONE SODIUM PHOSPHATE
     Indication: Pyrexia
  8. DEXAMETHASONE SODIUM PHOSPHATE [Concomitant]
     Active Substance: DEXAMETHASONE SODIUM PHOSPHATE
     Indication: Rash erythematous
  9. DEXAMETHASONE SODIUM PHOSPHATE [Concomitant]
     Active Substance: DEXAMETHASONE SODIUM PHOSPHATE
     Indication: Nausea
  10. DEXAMETHASONE SODIUM PHOSPHATE [Concomitant]
     Active Substance: DEXAMETHASONE SODIUM PHOSPHATE
     Indication: Dizziness
  11. DEXAMETHASONE SODIUM PHOSPHATE [Concomitant]
     Active Substance: DEXAMETHASONE SODIUM PHOSPHATE
     Indication: Antiallergic therapy

REACTIONS (22)
  - Altered state of consciousness [Recovered/Resolved]
  - Rash [Recovering/Resolving]
  - Seizure [Recovering/Resolving]
  - Pruritus [Recovered/Resolved]
  - Pruritus [Recovered/Resolved]
  - Hypotension [Recovering/Resolving]
  - Nausea [Recovered/Resolved]
  - Dizziness [Recovered/Resolved]
  - Cold sweat [Recovered/Resolved]
  - Shock [Recovered/Resolved]
  - Skin irritation [Recovered/Resolved]
  - Rash macular [Recovered/Resolved]
  - Pyrexia [Recovered/Resolved]
  - Rash erythematous [Recovered/Resolved]
  - Cyanosis [Recovered/Resolved]
  - Muscle twitching [Recovered/Resolved]
  - Lip erythema [Recovered/Resolved]
  - Pyrexia [Recovered/Resolved]
  - Papule [Recovered/Resolved]
  - Pyrexia [Recovered/Resolved]
  - Erythema [Recovered/Resolved]
  - Skin warm [Recovered/Resolved]

NARRATIVE: CASE EVENT DATE: 20211027
